FAERS Safety Report 9727023 (Version 1)
Quarter: 2013Q4

REPORT INFORMATION
  Report Type: Spontaneous
  Country: KR (occurrence: None)
  Receive Date: 20131129
  Receipt Date: 20131129
  Transmission Date: 20140711
  Serious: Yes (Hospitalization)
  Sender: FDA-Public Use
  Company Number: 2013P1021394

PATIENT
  Age: 55 Year
  Sex: Female

DRUGS (6)
  1. METFORMIN [Suspect]
  2. AMLODIPINE [Concomitant]
  3. OLMESARTAN [Concomitant]
  4. VITAMIN COMPLEX INCLUDING B AND C [Concomitant]
  5. FERRIC HYDROXIDE POLYMALTOSE COMPLEX [Concomitant]
  6. CITAGLIPTIN [Concomitant]

REACTIONS (2)
  - Encephalopathy [None]
  - Toxicity to various agents [None]
